FAERS Safety Report 5763856-6 (Version None)
Quarter: 2008Q2

REPORT INFORMATION
  Report Type: 
  Country: None (occurrence: None)
  Receive Date: 20080606
  Receipt Date: 20080606
  Transmission Date: 20081010
  Serious: Yes (Other)
  Sender: FDA-Public Use
  Company Number: None

PATIENT
  Sex: Male
  Weight: 19.5047 kg

DRUGS (1)
  1. NEOSPORIN [Suspect]
     Indication: FURUNCLE
     Dosage: SMALL DAB  1X  CUTANEOUS  (DURATION: 1 APPLICATION, 1 DAY)
     Route: 003
     Dates: start: 20080528, end: 20080528

REACTIONS (5)
  - APPLICATION SITE ERYTHEMA [None]
  - APPLICATION SITE RASH [None]
  - APPLICATION SITE SWELLING [None]
  - CAUSTIC INJURY [None]
  - WOUND SECRETION [None]
